FAERS Safety Report 19745692 (Version 2)
Quarter: 2021Q3

REPORT INFORMATION
  Report Type: Spontaneous
  Country: US (occurrence: US)
  Receive Date: 20210825
  Receipt Date: 20210902
  Transmission Date: 20211014
  Serious: No
  Sender: FDA-Public Use
  Company Number: US-PFIZER INC-202101044495

PATIENT
  Age: 60 Year
  Sex: Male
  Weight: 113 kg

DRUGS (1)
  1. INLYTA [Suspect]
     Active Substance: AXITINIB
     Indication: RENAL CANCER
     Dosage: 5 MG, 2X/DAY
     Route: 048
     Dates: start: 202107

REACTIONS (12)
  - Musculoskeletal pain [Unknown]
  - Dry skin [Unknown]
  - Product dose omission issue [Unknown]
  - Weight decreased [Unknown]
  - Urinary incontinence [Unknown]
  - Fungal balanitis [Unknown]
  - Dysphonia [Unknown]
  - Oropharyngeal pain [Unknown]
  - Limb discomfort [Unknown]
  - Decreased appetite [Unknown]
  - Taste disorder [Unknown]
  - Ear congestion [Unknown]

NARRATIVE: CASE EVENT DATE: 2021
